FAERS Safety Report 6170755-7 (Version None)
Quarter: 2009Q2

REPORT INFORMATION
  Report Type: 
  Country: None (occurrence: None)
  Receive Date: 20090427
  Receipt Date: 20090416
  Transmission Date: 20091009
  Serious: Yes (Congenital Anomaly)
  Sender: FDA-Public Use
  Company Number: 2008S1018522

PATIENT
  Age: 0 Year
  Sex: Female
  Weight: 4.2185 kg

DRUGS (1)
  1. AMNESTEEM [Suspect]
     Dates: start: 20071211, end: 20071230

REACTIONS (4)
  - EAR INFECTION [None]
  - HAEMANGIOMA CONGENITAL [None]
  - MATERNAL DRUGS AFFECTING FOETUS [None]
  - OTITIS MEDIA [None]
